FAERS Safety Report 20938272 (Version 2)
Quarter: 2022Q2

REPORT INFORMATION
  Report Type: Spontaneous
  Country: US (occurrence: US)
  Receive Date: 20220609
  Receipt Date: 20220615
  Transmission Date: 20220721
  Serious: No
  Sender: FDA-Public Use
  Company Number: US-IDORSIA-000507-2022-US

PATIENT
  Age: 57 Year
  Sex: Female

DRUGS (6)
  1. QUVIVIQ [Suspect]
     Active Substance: DARIDOREXANT
     Indication: Insomnia
     Dosage: 50 MG, QD
     Route: 048
     Dates: start: 20220531, end: 20220531
  2. IMURAN [Concomitant]
     Active Substance: AZATHIOPRINE
     Dosage: 150 MG, QD
     Route: 065
  3. PREDNISONE [Concomitant]
     Active Substance: PREDNISONE
     Dosage: 10 MG, QD
  4. ALPRAZOLAM [Concomitant]
     Active Substance: ALPRAZOLAM
     Dosage: 1 MG, QD
  5. ESTRADIOL [Concomitant]
     Active Substance: ESTRADIOL
  6. VITAMINS [Concomitant]
     Active Substance: VITAMINS

REACTIONS (3)
  - Paraesthesia [Recovered/Resolved]
  - Drug ineffective [Recovered/Resolved]
  - Somnolence [Recovered/Resolved]

NARRATIVE: CASE EVENT DATE: 20220531
